FAERS Safety Report 6460860-X (Version None)
Quarter: 2009Q4

REPORT INFORMATION
  Report Type: 
  Country: None (occurrence: None)
  Receive Date: 20091130
  Receipt Date: 20091120
  Transmission Date: 20100525
  Serious: Yes (Other)
  Sender: FDA-Public Use
  Company Number: JP-PFIZER INC-2009290874

PATIENT
  Age: 69 Year
  Sex: Female

DRUGS (6)
  1. ZITHROMAX [Suspect]
     Indication: OROPHARYNGEAL PAIN
     Dosage: 500 MG,  UNK
     Route: 048
     Dates: start: 20091009, end: 20091011
  2. ASVERIN [Concomitant]
     Dosage: UNK
     Route: 048
     Dates: start: 20091009
  3. TRANSAMIN [Concomitant]
     Dosage: UNK
     Route: 048
     Dates: start: 20091009
  4. MUCODYNE [Concomitant]
     Dosage: UNK
     Route: 048
     Dates: start: 20091009
  5. BIOFERMIN R [Concomitant]
     Dosage: UNK
     Route: 048
     Dates: start: 20091024
  6. BEPOTASTINE BESILATE [Concomitant]
     Dates: start: 20091024

REACTIONS (1)
  - GLAUCOMA [None]
